FAERS Safety Report 23619387 (Version 2)
Quarter: 2024Q2

REPORT INFORMATION
  Report Type: Report from Study
  Country: CA (occurrence: CA)
  Receive Date: 20240311
  Receipt Date: 20240402
  Transmission Date: 20240716
  Serious: Yes (Other)
  Sender: FDA-Public Use
  Company Number: CA-JNJFOC-20230700400

PATIENT
  Age: 43 Year
  Sex: Female
  Weight: 49.94 kg

DRUGS (5)
  1. STELARA [Suspect]
     Active Substance: USTEKINUMAB
     Indication: Colitis ulcerative
     Dosage: ON 30-JUN-2023, THE PATIENT RECEIVED 02TH LATEST INFUSION OF 90 MG AND PARTIAL MAYO WAS COMPLETED.
     Route: 040
     Dates: start: 20230512
  2. STELARA [Suspect]
     Active Substance: USTEKINUMAB
     Dosage: ON 16-OCT-2023, THE PATIENT RECEIVED 4TH DOSE OF USTEKINUMAB INJECTION OF 90 MG AND PARTIAL MAYO WAS
     Route: 058
     Dates: start: 2023
  3. STELARA [Suspect]
     Active Substance: USTEKINUMAB
     Route: 058
     Dates: start: 20231030
  4. STELARA [Suspect]
     Active Substance: USTEKINUMAB
     Dosage: INTRAVENOUS RE-INDUCTION DOSE
     Route: 040
  5. STELARA [Suspect]
     Active Substance: USTEKINUMAB
     Route: 058

REACTIONS (7)
  - Crohn^s disease [Recovering/Resolving]
  - Colitis ulcerative [Recovering/Resolving]
  - General physical health deterioration [Not Recovered/Not Resolved]
  - Abdominal pain upper [Not Recovered/Not Resolved]
  - Stress [Unknown]
  - Therapeutic product effect decreased [Unknown]
  - Off label use [Unknown]

NARRATIVE: CASE EVENT DATE: 20230101
